FAERS Safety Report 23375149 (Version 2)
Quarter: 2024Q1

REPORT INFORMATION
  Report Type: Spontaneous
  Country: TR (occurrence: TR)
  Receive Date: 20240106
  Receipt Date: 20240120
  Transmission Date: 20240410
  Serious: Yes (Death, Life-Threatening, Hospitalization, Other)
  Sender: FDA-Public Use
  Company Number: TR-MLMSERVICE-20231221-4725815-1

PATIENT
  Age: 58 Year
  Sex: Male
  Weight: 46 kg

DRUGS (5)
  1. FLUOROURACIL [Suspect]
     Active Substance: FLUOROURACIL
     Indication: Oesophageal squamous cell carcinoma
     Dosage: 4 CYCLES (EVERY 14 DAYS) BOLUS
  2. OXALIPLATIN [Suspect]
     Active Substance: OXALIPLATIN
     Indication: Oesophageal squamous cell carcinoma
     Dosage: 4 CYCLES, EVERY 14 DAYS
     Route: 042
  3. PEMBROLIZUMAB [Suspect]
     Active Substance: PEMBROLIZUMAB
     Indication: Oesophageal squamous cell carcinoma
     Dosage: 30-MINUTE , 4 CYCLES (EVERY 21 DAYS)
     Route: 042
  4. LEUCOVORIN CALCIUM [Suspect]
     Active Substance: LEUCOVORIN CALCIUM
     Indication: Oesophageal squamous cell carcinoma
     Dosage: 4 CYCLES (EVERY 14 DAYS), AS A 2-HOUR INFUSION
     Route: 042
  5. FLUOROURACIL [Suspect]
     Active Substance: FLUOROURACIL
     Indication: Oesophageal squamous cell carcinoma
     Dosage: 4 CYCLES (EVERY 14 DAYS),  46-HOUR INFUSION

REACTIONS (4)
  - Bronchopulmonary aspergillosis [Fatal]
  - Disseminated intravascular coagulation [Fatal]
  - Pneumonia salmonella [Fatal]
  - Pneumonia necrotising [Fatal]
